FAERS Safety Report 8053765-4 (Version None)
Quarter: 2011Q4

REPORT INFORMATION
  Report Type: 
  Country: None (occurrence: None)
  Receive Date: 20111213
  Receipt Date: 20110815
  Transmission Date: 20120403
  Serious: No
  Sender: FDA-Public Use
  Company Number: 2011SP038449

PATIENT
  Sex: Female

DRUGS (2)
  1. ZOLOFT [Concomitant]
  2. SAPHRIS [Suspect]
     Indication: BIPOLAR DISORDER
     Dosage: 5 MG;HS; PO
     Route: 048
     Dates: start: 20110101

REACTIONS (5)
  - TREMOR [None]
  - UNDERDOSE [None]
  - INCORRECT ROUTE OF DRUG ADMINISTRATION [None]
  - RABBIT SYNDROME [None]
  - INAPPROPRIATE SCHEDULE OF DRUG ADMINISTRATION [None]
